FAERS Safety Report 8962155 (Version 1)
Quarter: 2012Q4

REPORT INFORMATION
  Report Type: 
  Country: US (occurrence: US)
  Receive Date: 20121212
  Receipt Date: 20121212
  Transmission Date: 20130627
  Serious: Yes (Hospitalization, Other)
  Sender: FDA-Public Use
  Company Number: US-009507513-1212USA002721

PATIENT
  Age: 50 Year
  Sex: Male

DRUGS (10)
  1. JANUMET [Suspect]
     Route: 048
  2. SIMVASTATIN TABLETS, USP [Interacting]
     Route: 048
  3. LISINOPRIL [Interacting]
     Route: 065
  4. ATENOLOL [Interacting]
     Route: 065
  5. RISPERIDONE [Interacting]
     Route: 065
  6. KLONOPIN [Interacting]
     Route: 065
  7. IRON (UNSPECIFIED) [Interacting]
     Route: 065
  8. ASPIRIN [Interacting]
     Route: 065
  9. COGENTIN [Interacting]
     Route: 065
  10. TRICOR [Interacting]
     Route: 065

REACTIONS (18)
  - Loss of consciousness [Recovering/Resolving]
  - Renal failure [Recovering/Resolving]
  - Chromaturia [Recovering/Resolving]
  - Respiratory rate increased [Recovering/Resolving]
  - Asthenia [Recovering/Resolving]
  - Oedema peripheral [Recovering/Resolving]
  - Toxicity to various agents [Recovering/Resolving]
  - Pallor [Recovering/Resolving]
  - Hyperkalaemia [Recovering/Resolving]
  - Dialysis [Recovering/Resolving]
  - Atrioventricular block first degree [Recovering/Resolving]
  - Electrocardiogram QRS complex prolonged [Recovering/Resolving]
  - Blood glucose increased [Recovering/Resolving]
  - Pain [Recovering/Resolving]
  - Blood pressure systolic decreased [Recovering/Resolving]
  - Bradycardia [Recovering/Resolving]
  - Drug interaction [Unknown]
  - Speech disorder [Unknown]
